FAERS Safety Report 6031133-4 (Version None)
Quarter: 2008Q4

REPORT INFORMATION
  Report Type: 
  Country: None (occurrence: None)
  Receive Date: 20081222
  Receipt Date: 20081015
  Transmission Date: 20090506
  Serious: No
  Sender: FDA-Public Use
  Company Number: US-WYE-H06400508

PATIENT
  Age: 51 Year
  Weight: 63.56 kg

DRUGS (9)
  1. PRISTIQ [Suspect]
     Dosage: 50 MG 1X PER 1 DAY, ORAL
     Route: 048
     Dates: start: 20081009
  2. CYMBALTA [Concomitant]
  3. NEXIUM [Concomitant]
  4. TRAZODONE HCL [Concomitant]
  5. DOXEPIN HCL [Concomitant]
  6. REQUIP [Concomitant]
  7. HYDROCODONE (HYDROCODONE) [Concomitant]
  8. FENTANYL-100 [Concomitant]
  9. CLONAZEPAM [Concomitant]

REACTIONS (3)
  - ERYTHEMA [None]
  - PRURITUS [None]
  - RASH PAPULAR [None]
